FAERS Safety Report 4335353-6 (Version None)
Quarter: 2004Q2

REPORT INFORMATION
  Report Type: 
  Country: None (occurrence: None)
  Receive Date: 20040406
  Receipt Date: 20040326
  Transmission Date: 20050107
  Serious: Yes (Hospitalization)
  Sender: FDA-Public Use
  Company Number: 163-20785-04030722

PATIENT
  Age: 80 Year
  Sex: Male

DRUGS (1)
  1. THALOMID [Suspect]
     Indication: MULTIPLE MYELOMA
     Dosage: 100 MG, DAILY, ORAL
     Route: 048
     Dates: start: 20020809, end: 20031201

REACTIONS (3)
  - IMPAIRED HEALING [None]
  - LEG AMPUTATION [None]
  - SKIN ULCER [None]
